FAERS Safety Report 23541868 (Version 1)
Quarter: 2024Q1

REPORT INFORMATION
  Report Type: Spontaneous
  Country: DE (occurrence: DE)
  Receive Date: 20240220
  Receipt Date: 20240220
  Transmission Date: 20240410
  Serious: Yes (Other)
  Sender: FDA-Public Use
  Company Number: DE-EMBRYOTOX-202304139

PATIENT
  Age: 1 Day
  Sex: Male
  Weight: 2.22 kg

DRUGS (1)
  1. FLUOXETINE [Suspect]
     Active Substance: FLUOXETINE HYDROCHLORIDE
     Indication: Bulimia nervosa
     Dosage: 30 [MG/D ]/ STOPPED 3 MONTHS BEFORE ONSET OF PREGNANCY, FROM GW 20+5: 20-30 MG/D
     Route: 064
     Dates: start: 20230516, end: 20230922

REACTIONS (2)
  - Small for dates baby [Recovering/Resolving]
  - Foetal exposure during pregnancy [Unknown]

NARRATIVE: CASE EVENT DATE: 20230901
